FAERS Safety Report 21422692 (Version 2)
Quarter: 2022Q4

REPORT INFORMATION
  Report Type: Report from Study
  Country: US (occurrence: US)
  Receive Date: 20221007
  Receipt Date: 20221021
  Transmission Date: 20230112
  Serious: Yes (Hospitalization, Other)
  Sender: FDA-Public Use
  Company Number: US-ABBVIE-4141860

PATIENT
  Age: 75 Year
  Sex: Male

DRUGS (2)
  1. VENCLEXTA [Suspect]
     Active Substance: VENETOCLAX
     Indication: Acute myeloid leukaemia
     Route: 048
     Dates: end: 20221004
  2. VENCLEXTA [Suspect]
     Active Substance: VENETOCLAX
     Indication: Acute myeloid leukaemia
     Route: 048

REACTIONS (10)
  - Splenic injury [Unknown]
  - Loss of consciousness [Unknown]
  - Abdominal pain [Unknown]
  - Vomiting [Unknown]
  - Tumour lysis syndrome [Unknown]
  - Haemoglobin abnormal [Unknown]
  - Lethargy [Unknown]
  - Renal injury [Unknown]
  - Transfusion [Unknown]
  - Liver injury [Unknown]

NARRATIVE: CASE EVENT DATE: 20221004
